FAERS Safety Report 4920837-X (Version None)
Quarter: 2006Q1

REPORT INFORMATION
  Report Type: 
  Country: None (occurrence: None)
  Receive Date: 20060217
  Receipt Date: 20060207
  Transmission Date: 20060701
  Serious: Yes (Hospitalization, Other)
  Sender: FDA-Public Use
  Company Number: 2006021629

PATIENT
  Age: 44 Year
  Sex: Female

DRUGS (3)
  1. ATARAX (TABLET)  (HYDORXYZINE HYDROCHLORIDE) [Suspect]
     Indication: DEPRESSION
     Dosage: 25 MG, ORAL
     Route: 048
     Dates: start: 20050928
  2. ETHANOL (ETHANOL) [Suspect]
     Indication: ILL-DEFINED DISORDER
     Dosage: 4 TO 5 CANS
     Dates: start: 20050928
  3. CITALOPRAM (CITALOPRAM) [Suspect]
     Indication: DEPRESSION
     Dosage: 20 MG, ORAL
     Route: 048
     Dates: start: 20050928

REACTIONS (2)
  - SUICIDE ATTEMPT [None]
  - TORSADE DE POINTES [None]
